FAERS Safety Report 6251796-8 (Version None)
Quarter: 2009Q2

REPORT INFORMATION
  Report Type: 
  Country: None (occurrence: None)
  Receive Date: 20090626
  Receipt Date: 20090323
  Transmission Date: 20091009
  Serious: Yes (Hospitalization)
  Sender: FDA-Public Use
  Company Number: 623232

PATIENT
  Age: 52 Year
  Sex: Female

DRUGS (10)
  1. CAPECITABINE [Suspect]
     Indication: COLORECTAL CANCER METASTATIC
  2. BEVACIZUMAB (BEVACIZUMAB) [Suspect]
     Indication: COLORECTAL CANCER METASTATIC
  3. CETUXIMAB (CETUXIMAB) [Suspect]
     Indication: COLORECTAL CANCER METASTATIC
     Dosage: 400 MG/M2 INTRAVENOUS
     Route: 042
  4. PANITUMUMAB (PANITUMUMAB) [Suspect]
     Indication: COLORECTAL CANCER METASTATIC
     Dosage: 6 MG/KG 1 PER 2 WEEK INTRAVENOUS
     Route: 042
  5. FLUOROURACIL [Concomitant]
  6. LEUCOVORIN CALCIUM [Concomitant]
  7. IRINOTECAN HCL [Concomitant]
  8. OXALIPLATIN [Concomitant]
  9. DIPHENHYDRAMINE HCL [Concomitant]
  10. DEXAMETHASONE TAB [Concomitant]

REACTIONS (3)
  - DERMATITIS ACNEIFORM [None]
  - HAIR TEXTURE ABNORMAL [None]
  - INFUSION RELATED REACTION [None]
